FAERS Safety Report 5000391-7 (Version None)
Quarter: 2006Q2

REPORT INFORMATION
  Report Type: 
  Country: None (occurrence: None)
  Receive Date: 20060511
  Receipt Date: 20051207
  Transmission Date: 20061013
  Serious: Yes (Hospitalization)
  Sender: FDA-Public Use
  Company Number: US-MERCK-0512USA01456

PATIENT
  Age: 72 Year
  Sex: Male
  Weight: 102 kg

DRUGS (4)
  1. VIOXX [Suspect]
     Route: 048
     Dates: start: 20040501, end: 20040701
  2. TYLENOL (CAPLET) [Concomitant]
     Route: 065
  3. CYCLOBENZAPRINE HYDROCHLORIDE [Concomitant]
     Route: 065
  4. ACETAMINOPHEN AND PROPOXYPHENE NAPSYLATE [Concomitant]
     Route: 065

REACTIONS (3)
  - ANGINA PECTORIS [None]
  - CHEST PAIN [None]
  - MYOCARDIAL INFARCTION [None]
